FAERS Safety Report 9442894 (Version 4)
Quarter: 2013Q4

REPORT INFORMATION
  Report Type: Spontaneous
  Country: IT (occurrence: IT)
  Receive Date: 20130806
  Receipt Date: 20131217
  Transmission Date: 20140711
  Serious: Yes (Death, Hospitalization)
  Sender: FDA-Public Use
  Company Number: IT-TEVA-422820ISR

PATIENT
  Age: 81 Year
  Sex: Female

DRUGS (8)
  1. TICLOPIDINA CLORIDRATO [Suspect]
     Indication: CEREBROVASCULAR ACCIDENT
     Dosage: 250 MILLIGRAM DAILY;
     Route: 048
     Dates: start: 20100601, end: 20130622
  2. ASACOL [Suspect]
     Indication: COLITIS ULCERATIVE
     Dosage: 2400 MILLIGRAM DAILY; GASTRO RESISTANT TABLET
     Route: 048
     Dates: start: 20130412, end: 20130622
  3. ZYPREXA [Suspect]
     Indication: BIPOLAR DISORDER
     Dosage: 10 MILLIMOL DAILY;
     Route: 048
     Dates: start: 20130524, end: 20130622
  4. ANTRA [Concomitant]
     Dosage: GATRO RESISTANT HARD CAPSULES
  5. EUTIROX [Concomitant]
  6. LOSAZID 100MG+25MG [Concomitant]
     Dosage: LOSARTAN 1000MG + HYDROCHLOROTHIAZIDE 25MG
  7. SPIRIVA 18 MCG [Concomitant]
  8. FOLINA [Concomitant]
     Dosage: SOFT CAPSULES

REACTIONS (4)
  - Endocarditis [Fatal]
  - Sepsis [Fatal]
  - Neutropenia [Recovered/Resolved]
  - Leukopenia [Recovered/Resolved]
